FAERS Safety Report 6596578-2 (Version None)
Quarter: 2010Q1

REPORT INFORMATION
  Report Type: 
  Country: None (occurrence: None)
  Receive Date: 20100222
  Receipt Date: 20100222
  Transmission Date: 20100710
  Serious: Yes (Other)
  Sender: FDA-Public Use
  Company Number: None

PATIENT

DRUGS (4)
  1. OXYCODONE ER 80MG MALLINCKRODT [Suspect]
     Indication: MYOPATHY
     Dosage: 1 TAB EVERY 8 HOURS PO
     Route: 048
     Dates: start: 20100202, end: 20100210
  2. OXYCODONE ER 80MG MALLINCKRODT [Suspect]
     Indication: PAIN
     Dosage: 1 TAB EVERY 8 HOURS PO
     Route: 048
     Dates: start: 20100202, end: 20100210
  3. OXYCONTIN [Concomitant]
  4. LEMONTH [Concomitant]

REACTIONS (4)
  - DIZZINESS [None]
  - HEADACHE [None]
  - NAUSEA [None]
  - VOMITING [None]
